FAERS Safety Report 4354354-5 (Version None)
Quarter: 2004Q2

REPORT INFORMATION
  Report Type: 
  Country: None (occurrence: None)
  Receive Date: 20040506
  Receipt Date: 20040428
  Transmission Date: 20050107
  Serious: Yes (Hospitalization)
  Sender: FDA-Public Use
  Company Number: US-MERCK-0404USA02442

PATIENT
  Age: 74 Year
  Sex: Female

DRUGS (1)
  1. TRUSOPT [Suspect]
     Indication: GLAUCOMA
     Route: 047

REACTIONS (4)
  - DYSPHAGIA [None]
  - EATING DISORDER [None]
  - PHARYNX DISCOMFORT [None]
  - THROAT TIGHTNESS [None]
